FAERS Safety Report 13537359 (Version 5)
Quarter: 2019Q1

REPORT INFORMATION
  Report Type: Spontaneous
  Country: US (occurrence: US)
  Receive Date: 20170511
  Receipt Date: 20190111
  Transmission Date: 20190417
  Serious: Yes (Other)
  Sender: FDA-Public Use
  Company Number: US-ASTRAZENECA-2017SE48947

PATIENT
  Age: 20769 Day
  Sex: Female
  Weight: 96.2 kg

DRUGS (71)
  1. NEXIUM [Suspect]
     Active Substance: ESOMEPRAZOLE MAGNESIUM
     Indication: GASTROOESOPHAGEAL REFLUX DISEASE
     Route: 048
     Dates: start: 2009, end: 2016
  2. PROTONIX [Suspect]
     Active Substance: PANTOPRAZOLE SODIUM
     Indication: GASTROOESOPHAGEAL REFLUX DISEASE
     Dosage: GENERIC
     Route: 065
     Dates: start: 2016, end: 2018
  3. CLIMARA [Concomitant]
     Active Substance: ESTRADIOL
     Dosage: GENERIC
     Route: 065
     Dates: start: 20050114
  4. METOCLOPRAM [Concomitant]
     Active Substance: METOCLOPRAMIDE
     Dosage: GENERIC
     Route: 065
     Dates: start: 20060206
  5. GLIPIZIDE. [Concomitant]
     Active Substance: GLIPIZIDE
     Dosage: GENERIC
     Route: 065
     Dates: start: 20050531
  6. FEXOFENADINE [Concomitant]
     Active Substance: FEXOFENADINE\FEXOFENADINE HYDROCHLORIDE
     Dosage: GENERIC
     Route: 065
     Dates: start: 20060910
  7. LISINOPRIL. [Concomitant]
     Active Substance: LISINOPRIL
     Dosage: GENERIC
     Route: 048
     Dates: start: 20080604
  8. DOXYCYCLINE. [Concomitant]
     Active Substance: DOXYCYCLINE
     Dosage: GENERIC
     Route: 065
     Dates: start: 20090620
  9. DOCUSATE SODIUM. [Concomitant]
     Active Substance: DOCUSATE SODIUM
     Route: 065
     Dates: start: 20101117
  10. ONDANSETRON [Concomitant]
     Active Substance: ONDANSETRON
  11. PROTONIX [Suspect]
     Active Substance: PANTOPRAZOLE SODIUM
     Indication: GASTROOESOPHAGEAL REFLUX DISEASE
     Route: 048
     Dates: start: 20170926
  12. ELESTAT [Concomitant]
     Active Substance: EPINASTINE HYDROCHLORIDE
     Dosage: GENERIC
     Route: 065
     Dates: start: 20051202
  13. ERYTHROMYCIN. [Concomitant]
     Active Substance: ERYTHROMYCIN
     Dosage: GENERIC
     Route: 065
     Dates: start: 20061020
  14. RESTASIS [Concomitant]
     Active Substance: CYCLOSPORINE
     Dosage: GENERIC
     Route: 065
     Dates: start: 20070220
  15. PROMETHAZINE [Concomitant]
     Active Substance: PROMETHAZINE\PROMETHAZINE HYDROCHLORIDE
     Dosage: GENERIC
     Route: 065
     Dates: start: 20080912
  16. TRILIPIX [Concomitant]
     Active Substance: FENOFIBRIC ACID
     Route: 065
     Dates: start: 20110210
  17. PREDNISOLONE. [Concomitant]
     Active Substance: PREDNISOLONE
     Route: 065
     Dates: start: 20110810
  18. TRAMADOL. [Concomitant]
     Active Substance: TRAMADOL
     Dosage: 500 MG
     Dates: start: 2015
  19. RANITIDINE. [Concomitant]
     Active Substance: RANITIDINE
     Dates: start: 2005, end: 2014
  20. TUMS [Concomitant]
     Active Substance: CALCIUM CARBONATE
  21. PREVACID [Suspect]
     Active Substance: LANSOPRAZOLE
     Route: 065
     Dates: start: 2006, end: 2008
  22. AMARYL [Concomitant]
     Active Substance: GLIMEPIRIDE
     Dosage: GENERIC
     Route: 065
     Dates: start: 20050104
  23. GEMFIBROZIL. [Concomitant]
     Active Substance: GEMFIBROZIL
     Dosage: GENERIC
     Route: 065
     Dates: start: 20050303
  24. TEMAZEPAM. [Concomitant]
     Active Substance: TEMAZEPAM
     Dosage: GENERIC
     Route: 065
     Dates: start: 20080604
  25. CITALOPRAM [Concomitant]
     Active Substance: CITALOPRAM HYDROBROMIDE
     Dosage: GENERIC
     Route: 065
     Dates: start: 20090407
  26. SMZ-TMP [Concomitant]
     Active Substance: SULFAMETHOXAZOLE\TRIMETHOPRIM
     Dosage: GENERIC
     Route: 065
     Dates: start: 20090620
  27. COMBIVENT [Concomitant]
     Active Substance: ALBUTEROL SULFATE\IPRATROPIUM BROMIDE
     Route: 065
     Dates: start: 20101101
  28. PROTOPIC [Concomitant]
     Active Substance: TACROLIMUS
     Route: 065
     Dates: start: 20101101
  29. BACLOFEN. [Concomitant]
     Active Substance: BACLOFEN
     Route: 065
     Dates: start: 20110415
  30. CELLCEPT [Concomitant]
     Active Substance: MYCOPHENOLATE MOFETIL\MYCOPHENOLATE MOFETIL HYDROCHLORIDE
     Route: 048
     Dates: start: 20180723
  31. VALGANCICLOVIR. [Concomitant]
     Active Substance: VALGANCICLOVIR
  32. NEXIUM [Suspect]
     Active Substance: ESOMEPRAZOLE MAGNESIUM
     Indication: GASTROOESOPHAGEAL REFLUX DISEASE
     Dosage: BEFORE BREAKFAST
     Route: 048
     Dates: start: 20110622
  33. PRILOSEC [Suspect]
     Active Substance: OMEPRAZOLE MAGNESIUM
     Indication: GASTROOESOPHAGEAL REFLUX DISEASE
     Route: 048
     Dates: start: 20170918
  34. LANTUS [Concomitant]
     Active Substance: INSULIN GLARGINE
     Dosage: GENERIC
     Route: 065
     Dates: start: 20051202
  35. VITAMIN D3 [Concomitant]
     Active Substance: CHOLECALCIFEROL
     Dosage: GENERIC
     Route: 065
     Dates: start: 20090407
  36. DIAZEPAM. [Concomitant]
     Active Substance: DIAZEPAM
     Route: 065
     Dates: start: 20101105
  37. METOPROLOL. [Concomitant]
     Active Substance: METOPROLOL
     Dosage: 100 MG
     Dates: start: 2015, end: 2016
  38. LOSARTAN. [Concomitant]
     Active Substance: LOSARTAN
     Dosage: 100 MG
     Dates: start: 2015
  39. HUMALOG [Concomitant]
     Active Substance: INSULIN LISPRO
     Dosage: 100 UNIT/ML INJECTION
     Route: 065
     Dates: start: 20171102
  40. PREVACID [Suspect]
     Active Substance: LANSOPRAZOLE
     Route: 048
     Dates: start: 20060106
  41. DEXILANT [Suspect]
     Active Substance: DEXLANSOPRAZOLE
     Route: 065
  42. METHOCARBAMOL. [Concomitant]
     Active Substance: METHOCARBAMOL
     Dosage: GENERIC
     Route: 065
     Dates: start: 20060910
  43. ROZEREM [Concomitant]
     Active Substance: RAMELTEON
     Dosage: GENERIC
     Route: 065
     Dates: start: 20071106
  44. EFFEXOR XR [Concomitant]
     Active Substance: VENLAFAXINE HYDROCHLORIDE
     Dosage: GENERIC
     Route: 065
     Dates: start: 20080213
  45. CIPROFLOXACIN. [Concomitant]
     Active Substance: CIPROFLOXACIN
     Dosage: GENERIC
     Route: 065
     Dates: start: 20090115
  46. NAPROXEN. [Concomitant]
     Active Substance: NAPROXEN
     Dosage: GENERIC
     Route: 065
     Dates: start: 20100111
  47. SINGULAIR [Concomitant]
     Active Substance: MONTELUKAST SODIUM
     Route: 065
  48. FLUTICASONE. [Concomitant]
     Active Substance: FLUTICASONE
     Dosage: GENERIC
     Route: 065
     Dates: start: 20060910
  49. CALCITRIOL. [Concomitant]
     Active Substance: CALCITRIOL
     Dosage: 0.25 GENERIC
     Route: 065
     Dates: start: 20080806
  50. NASONEX [Concomitant]
     Active Substance: MOMETASONE FUROATE
     Dosage: GENERIC
     Route: 065
     Dates: start: 20100329
  51. VITAMIN B12 [Concomitant]
     Active Substance: CYANOCOBALAMIN
  52. NEXIUM [Suspect]
     Active Substance: ESOMEPRAZOLE MAGNESIUM
     Indication: GASTROOESOPHAGEAL REFLUX DISEASE
     Dosage: GENERIC
     Route: 065
     Dates: start: 20090102, end: 20160411
  53. LEVAQUIN [Concomitant]
     Active Substance: LEVOFLOXACIN
     Dosage: GENERIC
     Route: 065
     Dates: start: 20060612
  54. ZYRTEC [Concomitant]
     Active Substance: CETIRIZINE HYDROCHLORIDE
     Dosage: GENERIC
     Route: 065
     Dates: start: 20070402
  55. LOTEMAX [Concomitant]
     Active Substance: LOTEPREDNOL ETABONATE
     Dosage: GENERIC
     Route: 065
     Dates: start: 20071203
  56. CLONAZEPAM. [Concomitant]
     Active Substance: CLONAZEPAM
     Dosage: GENERIC
     Route: 065
     Dates: start: 20080708
  57. CHANTIX [Concomitant]
     Active Substance: VARENICLINE TARTRATE
     Dosage: GENERIC
     Route: 065
     Dates: start: 20090212
  58. TRIAMCINOLON E [Concomitant]
     Active Substance: CHLOROXINE\TRIAMCINOLONE ACETONIDE
     Route: 065
     Dates: start: 20101101
  59. LYRICA [Concomitant]
     Active Substance: PREGABALIN
     Route: 065
     Dates: start: 20101117
  60. ACTOS [Concomitant]
     Active Substance: PIOGLITAZONE HYDROCHLORIDE
     Route: 065
     Dates: start: 20110210
  61. CARISOPRODOL. [Concomitant]
     Active Substance: CARISOPRODOL
     Route: 065
     Dates: start: 20110809
  62. ASPIRIN. [Concomitant]
     Active Substance: ASPIRIN
     Indication: ANTICOAGULANT THERAPY
  63. PRILOSEC [Suspect]
     Active Substance: OMEPRAZOLE MAGNESIUM
     Indication: GASTROOESOPHAGEAL REFLUX DISEASE
     Dosage: GENERIC
     Route: 065
  64. AMBIEN [Concomitant]
     Active Substance: ZOLPIDEM TARTRATE
     Dosage: GENERIC
     Route: 065
     Dates: start: 20050407
  65. AMOXICILLIN. [Concomitant]
     Active Substance: AMOXICILLIN
     Dosage: GENERIC
     Route: 065
     Dates: start: 20050428
  66. GLYBURIDE. [Concomitant]
     Active Substance: GLYBURIDE
     Dosage: GENERIC
     Route: 065
     Dates: start: 20050503
  67. KETOCONAZOLE. [Concomitant]
     Active Substance: KETOCONAZOLE
     Dosage: GENERIC
     Route: 065
     Dates: start: 20050531
  68. ALBUTEROL. [Concomitant]
     Active Substance: ALBUTEROL
     Dosage: GENERIC
     Route: 055
     Dates: start: 20061103
  69. ATENOLOL. [Concomitant]
     Active Substance: ATENOLOL
     Dosage: GENERIC
     Route: 065
     Dates: start: 20070402
  70. GABAPENTIN. [Concomitant]
     Active Substance: GABAPENTIN
     Dosage: 400 MG
     Dates: start: 2015
  71. LEVEMIR [Concomitant]
     Active Substance: INSULIN DETEMIR
     Dosage: 100 UNIT/ML INJECTION
     Route: 065
     Dates: start: 20171102

REACTIONS (5)
  - Renal impairment [Unknown]
  - Acute kidney injury [Recovered/Resolved]
  - Chronic kidney disease [Not Recovered/Not Resolved]
  - Renal failure [Unknown]
  - Hyperparathyroidism secondary [Unknown]

NARRATIVE: CASE EVENT DATE: 20130522
